FAERS Safety Report 4630294-9 (Version None)
Quarter: 2005Q2

REPORT INFORMATION
  Report Type: 
  Country: None (occurrence: None)
  Receive Date: 20050408
  Receipt Date: 20050329
  Transmission Date: 20051028
  Serious: Yes (Other)
  Sender: FDA-Public Use
  Company Number: 200512554US

PATIENT
  Sex: Male

DRUGS (10)
  1. LANTUS [Suspect]
     Indication: DIABETES MELLITUS NON-INSULIN-DEPENDENT
     Dosage: DOSE UNIT: UNITS
     Route: 058
     Dates: start: 20040304, end: 20050329
  2. OPTICLIK (INSULIN INJECTION PEN) [Suspect]
     Dosage: DOSE: UNK
  3. HUMALOG [Concomitant]
     Dosage: DOSE: UNK; FREQUENCY: BEFORE MEALS
  4. ASPIRIN [Concomitant]
     Dosage: DOSE: UNK
  5. PERSANTINE [Concomitant]
     Dosage: DOSE: UNK
  6. ZOCOR [Concomitant]
     Dosage: DOSE: UNK
  7. MACRODANTIN [Concomitant]
     Dosage: DOSE: UNK
  8. PROSCAR [Concomitant]
     Dosage: DOSE: UNK
  9. UNKNOWN DRUG [Concomitant]
     Dosage: DOSE: UNK
  10. MONOPRIL [Concomitant]
     Dosage: DOSE: UNK

REACTIONS (8)
  - BLOOD GLUCOSE DECREASED [None]
  - CEREBROVASCULAR ACCIDENT [None]
  - HYPOGLYCAEMIA [None]
  - NERVOUS SYSTEM DISORDER [None]
  - RETINAL DETACHMENT [None]
  - VISUAL ACUITY REDUCED [None]
  - VITREOUS DETACHMENT [None]
  - VITREOUS FLOATERS [None]
